FAERS Safety Report 9347190 (Version 1)
Quarter: 2013Q2

REPORT INFORMATION
  Report Type: Spontaneous
  Country: NL (occurrence: NL)
  Receive Date: 20130613
  Receipt Date: 20130613
  Transmission Date: 20140414
  Serious: Yes (Other)
  Sender: FDA-Public Use
  Company Number: NL-PFIZER INC-2013173374

PATIENT
  Sex: Female

DRUGS (1)
  1. STEDIRIL-30 [Suspect]
     Indication: CONTRACEPTION
     Dosage: UNK
     Dates: start: 197605

REACTIONS (2)
  - Breast cancer [Unknown]
  - Skin ulcer [Recovered/Resolved]
